FAERS Safety Report 4486908-X (Version None)
Quarter: 2004Q4

REPORT INFORMATION
  Report Type: 
  Country: None (occurrence: None)
  Receive Date: 20041022
  Receipt Date: 20041005
  Transmission Date: 20050328
  Serious: Yes (Hospitalization)
  Sender: FDA-Public Use
  Company Number: 2004237227CA

PATIENT
  Age: 33 Year
  Sex: Female

DRUGS (6)
  1. FRAGMIN [Suspect]
     Dosage: 100 U/KG, BID, IV
     Route: 042
  2. OXYGEN (OXYGEN) [Concomitant]
  3. ACETYLSALICYLIC ACID [Concomitant]
  4. HEPARIN [Concomitant]
  5. MORPHINE [Concomitant]
  6. BETA BLOCKING AGENTS [Concomitant]

REACTIONS (10)
  - ABORTION INDUCED [None]
  - ARRHYTHMIA SUPRAVENTRICULAR [None]
  - CARDIAC MURMUR [None]
  - CORONARY ARTERY OCCLUSION [None]
  - CRACKLES LUNG [None]
  - DRUG EXPOSURE DURING PREGNANCY [None]
  - DRUG INEFFECTIVE [None]
  - EMBOLISM [None]
  - MYOCARDIAL INFARCTION [None]
  - SINUS TACHYCARDIA [None]
